FAERS Safety Report 10402972 (Version 1)
Quarter: 2014Q1

REPORT INFORMATION
  Report Type: Spontaneous
  Country: US (occurrence: None)
  Receive Date: 20130815
  Receipt Date: 20130815
  Transmission Date: 20141002
  Serious: Yes (Other)
  Sender: FDA-Public Use
  Company Number: ADR-2009-6889

PATIENT
  Age: 51 Year
  Sex: Male

DRUGS (2)
  1. BACLOFEN INTRATHECAL (BACLOFEN INJECTION) 2000 MCG/ML [Suspect]
     Indication: CEREBRAL PALSY
     Route: 037
  2. BACLOFEN INTRATHECAL (BACLOFEN INJECTION) 2000 MCG/ML [Suspect]
     Indication: MUSCLE SPASTICITY
     Route: 037

REACTIONS (4)
  - Hypertonia [None]
  - Agitation [None]
  - Discomfort [None]
  - Irritability [None]
